FAERS Safety Report 6243737-4 (Version None)
Quarter: 2009Q2

REPORT INFORMATION
  Report Type: 
  Country: None (occurrence: None)
  Receive Date: 20090624
  Receipt Date: 20080616
  Transmission Date: 20091009
  Serious: No
  Sender: FDA-Public Use
  Company Number: A0733410A

PATIENT
  Age: 56 Year
  Sex: Female

DRUGS (2)
  1. CEFTAZIDIME [Suspect]
     Indication: BRONCHIECTASIS
     Dosage: 2MG TWICE PER DAY
     Route: 042
     Dates: start: 20080606
  2. METHADONE [Concomitant]

REACTIONS (2)
  - BURNING SENSATION [None]
  - INFUSION SITE PRURITUS [None]
